FAERS Safety Report 6810580-4 (Version None)
Quarter: 2010Q2

REPORT INFORMATION
  Report Type: 
  Country: None (occurrence: None)
  Receive Date: 20100630
  Receipt Date: 20100618
  Transmission Date: 20101027
  Serious: Yes (Other)
  Sender: FDA-Public Use
  Company Number: BR-ABBOTT-08P-020-0476673-00

PATIENT
  Sex: Female
  Weight: 75 kg

DRUGS (10)
  1. HUMIRA [Suspect]
     Indication: RHEUMATOID ARTHRITIS
     Route: 058
     Dates: start: 20040601
  2. HUMIRA [Suspect]
     Route: 058
     Dates: start: 20091101, end: 20100530
  3. HUMIRA [Suspect]
     Route: 058
  4. UNKNOWN CORTICOIDS [Suspect]
     Indication: DRUG USE FOR UNKNOWN INDICATION
  5. HYDROXYCHLOROQUINE SULFATE [Concomitant]
     Indication: DRUG USE FOR UNKNOWN INDICATION
  6. METHOTREXATE [Concomitant]
     Indication: ARTHRITIS
     Dosage: 2-2.5 MG TAB EVERY 3 DAYS
     Dates: start: 20040101
  7. NAPROXEN [Concomitant]
     Indication: DRUG USE FOR UNKNOWN INDICATION
  8. CALCIUM CARBONATE [Concomitant]
     Indication: OSTEOPOROSIS
     Route: 048
     Dates: start: 20050101
  9. PREDNISONE [Concomitant]
     Indication: ARTHRITIS
     Dates: start: 20040101
  10. FOLIC ACID [Concomitant]
     Indication: ARTHRITIS
     Dosage: 2-10 MG TABS EVERY 3 WEEKS
     Dates: start: 20040101

REACTIONS (5)
  - DENGUE FEVER [None]
  - OEDEMA PERIPHERAL [None]
  - PAIN [None]
  - POSTOPERATIVE WOUND INFECTION [None]
  - TENDON RUPTURE [None]
